FAERS Safety Report 12655003 (Version 1)
Quarter: 2016Q3

REPORT INFORMATION
  Report Type: Spontaneous
  Country: US (occurrence: None)
  Receive Date: 20160815
  Receipt Date: 20160815
  Transmission Date: 20161109
  Serious: Yes (Life-Threatening, Hospitalization)
  Sender: FDA-Public Use
  Company Number: None

PATIENT
  Age: 71 Year
  Sex: Female
  Weight: 49 kg

DRUGS (3)
  1. BELATACEPT, 300MG [Suspect]
     Active Substance: BELATACEPT
     Indication: RENAL TRANSPLANT
     Dosage: 300 MG EVERY 28 DAYS INTRAVENOUS BOLUS
     Route: 040
     Dates: start: 20140515, end: 20160713
  2. MYCOPHENOLATE [Concomitant]
     Active Substance: MYCOPHENOLIC ACID
  3. PREDNISONE. [Concomitant]
     Active Substance: PREDNISONE

REACTIONS (4)
  - Diffuse large B-cell lymphoma [None]
  - Fall [None]
  - Mental status changes [None]
  - Intracranial mass [None]

NARRATIVE: CASE EVENT DATE: 20160808
